FAERS Safety Report 9643289 (Version 1)
Quarter: 2013Q4

REPORT INFORMATION
  Report Type: Spontaneous
  Country: JP (occurrence: None)
  Receive Date: 20131022
  Receipt Date: 20131022
  Transmission Date: 20140711
  Serious: Yes (Other)
  Sender: FDA-Public Use
  Company Number: JP-ALSI-201300253

PATIENT
  Age: 56 Year
  Sex: Female
  Weight: 43.2 kg

DRUGS (4)
  1. OXYGEN [Suspect]
     Indication: DYSPNOEA
     Dosage: ONCE A MINUTE RESPIRATORY
  2. OXYGEN [Concomitant]
     Dosage: ONCE A MINUTE RESPIRATORY
  3. NOVORAPID (INSULIN ASPART) [Concomitant]
  4. LANTUS (INSULIN GLARGINE) [Concomitant]

REACTIONS (4)
  - Hypercapnia [None]
  - Depressed level of consciousness [None]
  - Respiratory failure [None]
  - Bronchopneumonia [None]
